FAERS Safety Report 19549186 (Version 1)
Quarter: 2021Q3

REPORT INFORMATION
  Report Type: Spontaneous
  Country: JP (occurrence: JP)
  Receive Date: 20210714
  Receipt Date: 20210714
  Transmission Date: 20211014
  Serious: Yes (Hospitalization, Other)
  Sender: FDA-Public Use
  Company Number: JP-ALVOGEN-2021-ALVOGEN-117193

PATIENT
  Age: 23 Year
  Sex: Male
  Weight: 61 kg

DRUGS (1)
  1. MINOCYCLINE [Suspect]
     Active Substance: MINOCYCLINE HYDROCHLORIDE
     Indication: ACNE

REACTIONS (6)
  - Polyarteritis nodosa [Recovered/Resolved]
  - Renovascular hypertension [Recovered/Resolved]
  - Visual impairment [Unknown]
  - Proteinuria [Recovered/Resolved]
  - Renal arteritis [Recovered/Resolved]
  - Eye haemorrhage [Unknown]
